FAERS Safety Report 13114906 (Version 1)
Quarter: 2017Q1

REPORT INFORMATION
  Report Type: Spontaneous
  Country: JP (occurrence: JP)
  Receive Date: 20170113
  Receipt Date: 20170113
  Transmission Date: 20170428
  Serious: Yes (Death, Other)
  Sender: FDA-Public Use
  Company Number: JP-009507513-1701JPN005929

PATIENT
  Age: 79 Year
  Sex: Female
  Weight: 50 kg

DRUGS (9)
  1. OMEPRAZOLE. [Concomitant]
     Active Substance: OMEPRAZOLE
     Indication: PROPHYLAXIS AGAINST GASTROINTESTINAL ULCER
     Dosage: 20 MG, BID
     Route: 051
     Dates: start: 20160315, end: 20160325
  2. VICCILLIN [Concomitant]
     Active Substance: AMPICILLIN
     Indication: BACTERIAL INFECTION
     Dosage: 2 G, TID
     Route: 051
     Dates: start: 20160317, end: 20160323
  3. DENOSINE [Concomitant]
     Active Substance: GANCICLOVIR
     Indication: CYTOMEGALOVIRUS INFECTION
     Dosage: 250 MG, QD
     Route: 051
     Dates: start: 20160316, end: 20160318
  4. PRECEDEX [Concomitant]
     Active Substance: DEXMEDETOMIDINE HYDROCHLORIDE
     Indication: SEDATION
     Dosage: 20 UNK, UNK
     Route: 051
     Dates: start: 20160314, end: 20160325
  5. CANCIDAS [Suspect]
     Active Substance: CASPOFUNGIN ACETATE
     Indication: LOWER RESPIRATORY TRACT INFECTION
     Dosage: 50 MG, QD
     Route: 041
     Dates: start: 20160317, end: 20160324
  6. MEROPENEM. [Concomitant]
     Active Substance: MEROPENEM
     Dosage: 1 G, TID
     Route: 051
     Dates: start: 20160323, end: 20160325
  7. MEROPENEM. [Concomitant]
     Active Substance: MEROPENEM
     Indication: BACTERIAL INFECTION
     Dosage: 1 G, TID
     Route: 051
     Dates: start: 20160313, end: 20160317
  8. SOL MELCORT [Concomitant]
     Active Substance: METHYLPREDNISOLONE
     Indication: INTERSTITIAL LUNG DISEASE
     Dosage: 60 MG, QD
     Route: 051
     Dates: start: 20160311, end: 20160321
  9. CANCIDAS [Suspect]
     Active Substance: CASPOFUNGIN ACETATE
     Indication: LOWER RESPIRATORY TRACT INFECTION
     Dosage: 70 MG, QD
     Route: 041
     Dates: start: 20160316, end: 20160316

REACTIONS (1)
  - Multiple organ dysfunction syndrome [Fatal]

NARRATIVE: CASE EVENT DATE: 20160323
